FAERS Safety Report 8270969-6 (Version None)
Quarter: 2012Q2

REPORT INFORMATION
  Report Type: 
  Country: None (occurrence: None)
  Receive Date: 20120410
  Receipt Date: 20120228
  Transmission Date: 20120825
  Serious: Yes (Other)
  Sender: FDA-Public Use
  Company Number: US-ROCHE-1053651

PATIENT
  Sex: Female

DRUGS (2)
  1. PEGASYS [Suspect]
     Indication: PRODUCT USED FOR UNKNOWN INDICATION
  2. COPEGUS [Suspect]
     Indication: PRODUCT USED FOR UNKNOWN INDICATION

REACTIONS (5)
  - ABDOMINAL DISTENSION [None]
  - DYSPNOEA [None]
  - THYROID DISORDER [None]
  - DEMENTIA ALZHEIMER'S TYPE [None]
  - SWELLING [None]
